FAERS Safety Report 16624545 (Version 1)
Quarter: 2019Q3

REPORT INFORMATION
  Report Type: Spontaneous
  Country: FR (occurrence: FR)
  Receive Date: 20190724
  Receipt Date: 20190724
  Transmission Date: 20191004
  Serious: Yes (Hospitalization)
  Sender: FDA-Public Use
  Company Number: FR-TEVA-2019-FR-1081032

PATIENT
  Age: 71 Year
  Sex: Male
  Weight: 46 kg

DRUGS (2)
  1. ZYTIGA [Suspect]
     Active Substance: ABIRATERONE ACETATE
     Indication: PROSTATE CANCER METASTATIC
     Dosage: 1 GRAM DAILY;
     Route: 048
     Dates: start: 20190525, end: 20190621
  2. PREDNISONE. [Suspect]
     Active Substance: PREDNISONE
     Dosage: 10 MILLIGRAM DAILY;
     Route: 048
     Dates: start: 20190525, end: 20190615

REACTIONS (3)
  - Oedema peripheral [Recovering/Resolving]
  - Acute pulmonary oedema [Recovered/Resolved]
  - Cardiac failure acute [Recovering/Resolving]

NARRATIVE: CASE EVENT DATE: 201906
